FAERS Safety Report 10014396 (Version 2)
Quarter: 2014Q2

REPORT INFORMATION
  Report Type: Spontaneous
  Country: IT (occurrence: IT)
  Receive Date: 20140317
  Receipt Date: 20140512
  Transmission Date: 20141212
  Serious: Yes (Hospitalization)
  Sender: FDA-Public Use
  Company Number: IT-UCBSA-114415

PATIENT
  Age: 68 Year
  Sex: Female

DRUGS (6)
  1. KEPPRA [Suspect]
     Indication: EPILEPSY
     Dosage: 500 MG TABLETS
     Route: 048
     Dates: start: 20130101
  2. TOLEP [Suspect]
     Indication: EPILEPSY
     Dosage: 600 MG DIVISIBLE TABLETS
     Route: 048
     Dates: start: 20120101
  3. DOMPERIDONE [Concomitant]
  4. OMEPRAZOLE [Concomitant]
  5. TORVAST [Concomitant]
  6. CARDIOASPIRIN [Concomitant]
     Dosage: 100 MG

REACTIONS (1)
  - Hyponatraemia [Recovering/Resolving]
